FAERS Safety Report 19147379 (Version 2)
Quarter: 2021Q3

REPORT INFORMATION
  Report Type: Spontaneous
  Country: US (occurrence: US)
  Receive Date: 20210416
  Receipt Date: 20210709
  Transmission Date: 20211014
  Serious: Yes (Other)
  Sender: FDA-Public Use
  Company Number: US-TEVA-2021-US-1900878

PATIENT
  Age: 34 Year
  Sex: Male

DRUGS (5)
  1. AUSTEDO [Suspect]
     Active Substance: DEUTETRABENAZINE
     Dosage: 18 MILLIGRAM DAILY;
     Route: 065
     Dates: start: 20210525
  2. AUSTEDO [Suspect]
     Active Substance: DEUTETRABENAZINE
     Indication: DYSKINESIA
     Dosage: 12 MILLIGRAM DAILY;
     Route: 065
     Dates: start: 20180524
  3. LORATADINE. [Concomitant]
     Active Substance: LORATADINE
  4. HALDOL DECANOATE [Suspect]
     Active Substance: HALOPERIDOL DECANOATE
     Route: 065
  5. BENZTROPINE. [Concomitant]
     Active Substance: BENZTROPINE
     Dosage: AM AND HS
     Route: 065

REACTIONS (7)
  - Sinus operation [Unknown]
  - Gait disturbance [Unknown]
  - Fall [Not Recovered/Not Resolved]
  - Nasal injury [Unknown]
  - Tremor [Unknown]
  - Restlessness [Unknown]
  - Device use issue [Unknown]

NARRATIVE: CASE EVENT DATE: 20210203
